FAERS Safety Report 23793401 (Version 1)
Quarter: 2024Q2

REPORT INFORMATION
  Report Type: Spontaneous
  Country: US (occurrence: US)
  Receive Date: 20240429
  Receipt Date: 20240429
  Transmission Date: 20240715
  Serious: Yes (Hospitalization, Other)
  Sender: FDA-Public Use
  Company Number: US-CHEPLA-2024005177

PATIENT
  Age: 67 Year
  Sex: Female

DRUGS (2)
  1. OLANZAPINE [Suspect]
     Active Substance: OLANZAPINE
     Indication: Schizophrenia
  2. PERPHENAZINE [Suspect]
     Active Substance: PERPHENAZINE
     Indication: Schizophrenia

REACTIONS (4)
  - Hyperthyroidism [Unknown]
  - Hyperprolactinaemia [Recovering/Resolving]
  - Mastoiditis [Unknown]
  - Schizophrenia [Unknown]
